FAERS Safety Report 7153192-8 (Version None)
Quarter: 2010Q4

REPORT INFORMATION
  Report Type: 
  Country: None (occurrence: None)
  Receive Date: 20101213
  Receipt Date: 20101129
  Transmission Date: 20110411
  Serious: Yes (Hospitalization, Other)
  Sender: FDA-Public Use
  Company Number: US-ELI_LILLY_AND_COMPANY-US201011007597

PATIENT
  Age: 62 Year
  Sex: Male

DRUGS (11)
  1. CYMBALTA [Suspect]
     Indication: ANXIETY
     Dosage: 30 MG, 2/D
  2. COZAAR [Concomitant]
  3. NORVASC [Concomitant]
  4. FUROSEMIDE [Concomitant]
  5. METFORMIN [Concomitant]
  6. PLAVIX [Concomitant]
  7. PRAVASTATIN [Concomitant]
  8. METOPROLOL [Concomitant]
     Dosage: 50 MG, UNK
  9. GLIPIZIDE [Concomitant]
     Dosage: 10 MG, UNK
  10. ASPIRIN [Concomitant]
  11. MULTI-VITAMIN [Concomitant]

REACTIONS (3)
  - CAROTID ARTERY OCCLUSION [None]
  - CEREBROVASCULAR ACCIDENT [None]
  - HEMIPLEGIA [None]
